FAERS Safety Report 25549600 (Version 1)
Quarter: 2025Q3

REPORT INFORMATION
  Report Type: Spontaneous
  Country: US (occurrence: US)
  Receive Date: 20250714
  Receipt Date: 20250714
  Transmission Date: 20251021
  Serious: Yes (Death)
  Sender: MYLAN
  Company Number: US-MYLANLABS-2025M1058849

PATIENT
  Sex: Male

DRUGS (20)
  1. SILDENAFIL [Suspect]
     Active Substance: SILDENAFIL
     Indication: Product used for unknown indication
  2. SILDENAFIL [Suspect]
     Active Substance: SILDENAFIL
     Route: 065
  3. SILDENAFIL [Suspect]
     Active Substance: SILDENAFIL
     Route: 065
  4. SILDENAFIL [Suspect]
     Active Substance: SILDENAFIL
  5. ELIQUIS [Suspect]
     Active Substance: APIXABAN
     Indication: Product used for unknown indication
  6. ELIQUIS [Suspect]
     Active Substance: APIXABAN
     Route: 065
  7. ELIQUIS [Suspect]
     Active Substance: APIXABAN
     Route: 065
  8. ELIQUIS [Suspect]
     Active Substance: APIXABAN
  9. AMBRISENTAN [Suspect]
     Active Substance: AMBRISENTAN
     Indication: Pulmonary arterial hypertension
     Dosage: 10 MILLIGRAM, QD (PER DAY)
     Dates: start: 20250321
  10. AMBRISENTAN [Suspect]
     Active Substance: AMBRISENTAN
     Dosage: 10 MILLIGRAM, QD (PER DAY)
     Route: 048
     Dates: start: 20250321
  11. AMBRISENTAN [Suspect]
     Active Substance: AMBRISENTAN
     Dosage: 10 MILLIGRAM, QD (PER DAY)
     Route: 048
     Dates: start: 20250321
  12. AMBRISENTAN [Suspect]
     Active Substance: AMBRISENTAN
     Dosage: 10 MILLIGRAM, QD (PER DAY)
     Dates: start: 20250321
  13. ORENITRAM [Suspect]
     Active Substance: TREPROSTINIL
     Indication: Product used for unknown indication
  14. ORENITRAM [Suspect]
     Active Substance: TREPROSTINIL
     Route: 065
  15. ORENITRAM [Suspect]
     Active Substance: TREPROSTINIL
     Route: 065
  16. ORENITRAM [Suspect]
     Active Substance: TREPROSTINIL
  17. TYVASO [Concomitant]
     Active Substance: TREPROSTINIL
     Indication: Product used for unknown indication
  18. TYVASO [Concomitant]
     Active Substance: TREPROSTINIL
     Route: 065
  19. TYVASO [Concomitant]
     Active Substance: TREPROSTINIL
     Route: 065
  20. TYVASO [Concomitant]
     Active Substance: TREPROSTINIL

REACTIONS (1)
  - Death [Fatal]

NARRATIVE: CASE EVENT DATE: 20250626
